FAERS Safety Report 21485694 (Version 1)
Quarter: 2022Q4

REPORT INFORMATION
  Report Type: Spontaneous
  Country: US (occurrence: US)
  Receive Date: 20221020
  Receipt Date: 20221020
  Transmission Date: 20230112
  Serious: No
  Sender: FDA-Public Use
  Company Number: US-SA-SAC20221020000504

PATIENT
  Sex: Female

DRUGS (1)
  1. ENJAYMO [Suspect]
     Active Substance: SUTIMLIMAB-JOME
     Dosage: UNK
     Route: 042

REACTIONS (4)
  - Dyspnoea exertional [Unknown]
  - Haematuria [Unknown]
  - Haemoglobin decreased [Unknown]
  - Headache [Unknown]
